FAERS Safety Report 10030010 (Version 1)
Quarter: 2014Q1

REPORT INFORMATION
  Report Type: Spontaneous
  Country: US (occurrence: US)
  Receive Date: 20140323
  Receipt Date: 20140323
  Transmission Date: 20141002
  Serious: No
  Sender: FDA-Public Use
  Company Number: US-ALLERGAN-1304903US

PATIENT
  Age: 41 Year
  Sex: Female

DRUGS (1)
  1. LATISSE 0.03% [Suspect]
     Indication: GROWTH OF EYELASHES
     Dosage: 2 GTT, SINGLE
     Route: 061
     Dates: start: 20130403, end: 20130403

REACTIONS (6)
  - Inappropriate schedule of drug administration [Unknown]
  - Erythema [Not Recovered/Not Resolved]
  - Erythema [Not Recovered/Not Resolved]
  - Erythema of eyelid [Unknown]
  - Erythema of eyelid [Not Recovered/Not Resolved]
  - Blepharitis [Unknown]
